FAERS Safety Report 11182519 (Version 1)
Quarter: 2015Q2

REPORT INFORMATION
  Report Type: Spontaneous
  Country: US (occurrence: US)
  Receive Date: 20150611
  Receipt Date: 20150611
  Transmission Date: 20150821
  Serious: No
  Sender: FDA-Public Use
  Company Number: US-ASTELLAS-2015US017179

PATIENT
  Sex: Male

DRUGS (1)
  1. XTANDI [Suspect]
     Active Substance: ENZALUTAMIDE
     Indication: PROSTATE CANCER
     Dosage: 4 DF (CAPSULE), ONCE DAILY
     Route: 048
     Dates: start: 20150406

REACTIONS (11)
  - Muscular weakness [Unknown]
  - Abdominal distension [Unknown]
  - Pelvic pain [Unknown]
  - Constipation [Unknown]
  - Sleep disorder [Unknown]
  - Tinnitus [Unknown]
  - Oropharyngeal pain [Unknown]
  - Fatigue [Unknown]
  - Vision blurred [Unknown]
  - Musculoskeletal pain [Unknown]
  - Back pain [Unknown]
